FAERS Safety Report 25918957 (Version 1)
Quarter: 2025Q4

REPORT INFORMATION
  Report Type: Report from Study
  Country: US (occurrence: US)
  Receive Date: 20251014
  Receipt Date: 20251014
  Transmission Date: 20260117
  Serious: Yes (Other)
  Sender: ROCHE
  Company Number: US-ROCHE-10000405026

PATIENT

DRUGS (19)
  1. ATEZOLIZUMAB [Suspect]
     Active Substance: ATEZOLIZUMAB
     Indication: Neoplasm
     Route: 065
  2. BEVACIZUMAB [Suspect]
     Active Substance: BEVACIZUMAB
     Indication: Neoplasm
     Route: 065
  3. PEMBROLIZUMAB [Suspect]
     Active Substance: PEMBROLIZUMAB
     Indication: Neoplasm
     Route: 065
  4. NELVUTAMIG [Suspect]
     Active Substance: NELVUTAMIG
     Indication: Neoplasm
     Route: 065
  5. RELATLIMAB [Suspect]
     Active Substance: RELATLIMAB
     Indication: Neoplasm
     Route: 065
  6. DURVALUMAB [Suspect]
     Active Substance: DURVALUMAB
     Indication: Neoplasm
     Route: 065
  7. CEMIPLIMAB [Suspect]
     Active Substance: CEMIPLIMAB
     Indication: Neoplasm
     Route: 065
  8. AVELUMAB [Suspect]
     Active Substance: AVELUMAB
     Indication: Neoplasm
     Route: 065
  9. LENVATINIB [Suspect]
     Active Substance: LENVATINIB
     Indication: Neoplasm
     Route: 065
  10. AXITINIB [Suspect]
     Active Substance: AXITINIB
     Indication: Neoplasm
     Route: 065
  11. GEMCITABINE [Suspect]
     Active Substance: GEMCITABINE
     Indication: Neoplasm
     Route: 065
  12. PACLITAXEL [Suspect]
     Active Substance: PACLITAXEL
     Indication: Neoplasm
     Route: 065
  13. ETOPOSIDE [Suspect]
     Active Substance: ETOPOSIDE
     Indication: Neoplasm
     Route: 065
  14. CARBOPLATIN [Suspect]
     Active Substance: CARBOPLATIN
     Indication: Neoplasm
     Route: 065
  15. NIVOLUMAB [Suspect]
     Active Substance: NIVOLUMAB
     Indication: Neoplasm
     Route: 065
  16. CABOZANTINIB [Suspect]
     Active Substance: CABOZANTINIB
     Indication: Neoplasm
     Route: 065
  17. OXALIPLATIN [Suspect]
     Active Substance: OXALIPLATIN
     Indication: Neoplasm
     Route: 065
  18. CISPLATIN [Suspect]
     Active Substance: CISPLATIN
     Indication: Neoplasm
     Route: 065
  19. FLUOROURACIL [Suspect]
     Active Substance: FLUOROURACIL
     Indication: Neoplasm
     Route: 065

REACTIONS (8)
  - Fatigue [Unknown]
  - Hypothyroidism [Unknown]
  - Colitis [Unknown]
  - Dermatitis [Unknown]
  - Arthritis [Unknown]
  - Pneumonitis [Unknown]
  - Hepatitis [Unknown]
  - Sicca syndrome [Unknown]
